FAERS Safety Report 17325820 (Version 1)
Quarter: 2020Q1

REPORT INFORMATION
  Report Type: Spontaneous
  Country: DE (occurrence: DE)
  Receive Date: 20200127
  Receipt Date: 20200127
  Transmission Date: 20200409
  Serious: Yes (Other)
  Sender: FDA-Public Use
  Company Number: DE-MYLANLABS-2020M1007853

PATIENT
  Sex: Male

DRUGS (1)
  1. PREGABALIN. [Suspect]
     Active Substance: PREGABALIN
     Indication: RESTLESS LEGS SYNDROME
     Dosage: 225 MILLIGRAM DAILY; 0-0-75MG-150MG
     Route: 048
     Dates: start: 201801

REACTIONS (2)
  - Narcolepsy [Unknown]
  - Sleep study abnormal [Unknown]

NARRATIVE: CASE EVENT DATE: 20180203
